FAERS Safety Report 10245647 (Version 1)
Quarter: 2014Q2

REPORT INFORMATION
  Report Type: Report from Study
  Country: ZA (occurrence: ZA)
  Receive Date: 20140619
  Receipt Date: 20140619
  Transmission Date: 20141212
  Serious: Yes (Death, Hospitalization)
  Sender: FDA-Public Use
  Company Number: ZA-ROCHE-1420718

PATIENT
  Age: 68 Year
  Sex: Male

DRUGS (3)
  1. MIRCERA [Suspect]
     Indication: NEPHROGENIC ANAEMIA
     Route: 058
     Dates: start: 201307, end: 201405
  2. MIRCERA [Suspect]
     Route: 058
     Dates: start: 201201
  3. COSMOFER [Concomitant]
     Route: 042

REACTIONS (1)
  - Myocardial infarction [Fatal]
